FAERS Safety Report 18096866 (Version 1)
Quarter: 2020Q3

REPORT INFORMATION
  Report Type: Spontaneous
  Country: AU (occurrence: AU)
  Receive Date: 20200731
  Receipt Date: 20200731
  Transmission Date: 20201103
  Serious: Yes (Hospitalization)
  Sender: FDA-Public Use
  Company Number: AU-PFIZER INC-2020289107

PATIENT
  Age: 22 Year
  Sex: Female

DRUGS (1)
  1. GLUCOSE [Suspect]
     Active Substance: DEXTROSE
     Dosage: UNK
     Route: 042

REACTIONS (2)
  - Wernicke^s encephalopathy [Recovering/Resolving]
  - Liver function test abnormal [Unknown]
